FAERS Safety Report 9405530 (Version 2)
Quarter: 2013Q4

REPORT INFORMATION
  Report Type: Spontaneous
  Country: CA (occurrence: None)
  Receive Date: 20130715
  Receipt Date: 20131025
  Transmission Date: 20140711
  Serious: Yes (Life-Threatening, Hospitalization)
  Sender: FDA-Public Use
  Company Number: 2013-002191

PATIENT
  Age: 78 Year
  Sex: Female
  Weight: 80 kg

DRUGS (2)
  1. ACTONEL [Suspect]
     Indication: BONE DISORDER
     Dosage: 35 MG ONCE WEEKLY, ORAL
     Route: 048
     Dates: start: 2010
  2. ASPIRIN (ACETYLSALICYLIC ACID) [Concomitant]

REACTIONS (21)
  - Pneumonitis [None]
  - Myalgia [None]
  - Balance disorder [None]
  - Vomiting [None]
  - Chest discomfort [None]
  - Gastrooesophageal reflux disease [None]
  - Bone pain [None]
  - Lung disorder [None]
  - Musculoskeletal pain [None]
  - Back pain [None]
  - Fatigue [None]
  - Ear pain [None]
  - Tinnitus [None]
  - Dyspnoea [None]
  - Asthma [None]
  - Musculoskeletal pain [None]
  - Arthralgia [None]
  - Pulmonary oedema [None]
  - Gait disturbance [None]
  - Speech disorder [None]
  - Inflammation [None]
